FAERS Safety Report 23272934 (Version 1)
Quarter: 2023Q4

REPORT INFORMATION
  Report Type: Spontaneous
  Country: CN (occurrence: CN)
  Receive Date: 20231207
  Receipt Date: 20231207
  Transmission Date: 20240109
  Serious: Yes (Other)
  Sender: FDA-Public Use
  Company Number: CN-JNJFOC-20231182351

PATIENT
  Age: 79 Year
  Sex: Male
  Weight: 72 kg

DRUGS (2)
  1. DARZALEX [Suspect]
     Active Substance: DARATUMUMAB
     Indication: Plasma cell myeloma
     Dosage: 400 MG
     Route: 042
     Dates: start: 20220226, end: 20220226
  2. DARZALEX [Suspect]
     Active Substance: DARATUMUMAB
     Dosage: SLOW INTRAVENOUS DRIP OF DARATUMUMAB 15 DROPS/MIN
     Route: 041
     Dates: start: 202202

REACTIONS (4)
  - Tachypnoea [Recovering/Resolving]
  - Irritability [Recovering/Resolving]
  - Heart rate increased [Recovering/Resolving]
  - Infusion related reaction [Recovering/Resolving]

NARRATIVE: CASE EVENT DATE: 20220226
